FAERS Safety Report 7265153-9 (Version None)
Quarter: 2011Q1

REPORT INFORMATION
  Report Type: 
  Country: None (occurrence: None)
  Receive Date: 20110131
  Receipt Date: 20110126
  Transmission Date: 20110831
  Serious: Yes (Hospitalization)
  Sender: FDA-Public Use
  Company Number: PHHO2010FR10689

PATIENT
  Sex: Male
  Weight: 71 kg

DRUGS (3)
  1. METHOTREXATE [Concomitant]
  2. CYTARABINE [Concomitant]
  3. STI571/CGP57148B [Suspect]
     Indication: ACUTE LYMPHOCYTIC LEUKAEMIA
     Dosage: UNK
     Route: 048
     Dates: start: 20070921, end: 20070928

REACTIONS (12)
  - LYMPHOPENIA [None]
  - RENAL FAILURE [None]
  - ERYTHEMA [None]
  - HYPOALBUMINAEMIA [None]
  - WEIGHT DECREASED [None]
  - HYPOPROTEINAEMIA [None]
  - SKIN EXFOLIATION [None]
  - GENERAL PHYSICAL CONDITION ABNORMAL [None]
  - GRAFT VERSUS HOST DISEASE [None]
  - AZOTAEMIA [None]
  - PRURITUS GENERALISED [None]
  - ANAEMIA [None]
